FAERS Safety Report 14402949 (Version 1)
Quarter: 2018Q1

REPORT INFORMATION
  Report Type: Spontaneous
  Country: US (occurrence: US)
  Receive Date: 20180117
  Receipt Date: 20180117
  Transmission Date: 20180509
  Serious: No
  Sender: FDA-Public Use
  Company Number: US-MYLANLABS-2018M1000806

PATIENT
  Sex: Male

DRUGS (1)
  1. MUSE [Suspect]
     Active Substance: ALPROSTADIL
     Indication: ERECTILE DYSFUNCTION
     Dosage: UNK
     Route: 066

REACTIONS (5)
  - Product outer packaging issue [Recovered/Resolved]
  - Wrong technique in device usage process [None]
  - Wrong technique in product usage process [None]
  - Drug ineffective [Unknown]
  - No adverse event [Unknown]
